FAERS Safety Report 4609856-0 (Version None)
Quarter: 2005Q1

REPORT INFORMATION
  Report Type: 
  Country: None (occurrence: None)
  Receive Date: 20050314
  Receipt Date: 20050314
  Transmission Date: 20050727
  Serious: Yes (Other)
  Sender: FDA-Public Use
  Company Number: None

PATIENT
  Sex: Female

DRUGS (2)
  1. MARCAINE [Suspect]
     Indication: CAESAREAN SECTION
     Dates: start: 20050310, end: 20050311
  2. MARCAINE [Suspect]
     Indication: SPINAL ANAESTHESIA
     Dates: start: 20050310, end: 20050311

REACTIONS (2)
  - ANAESTHETIC COMPLICATION [None]
  - INADEQUATE ANALGESIA [None]
